FAERS Safety Report 9067608 (Version 4)
Quarter: 2013Q2

REPORT INFORMATION
  Report Type: Spontaneous
  Country: US (occurrence: US)
  Receive Date: 20130206
  Receipt Date: 20130509
  Transmission Date: 20140414
  Serious: No
  Sender: FDA-Public Use
  Company Number: US-PFIZER INC-2013030057

PATIENT
  Age: 34 Year
  Sex: Male
  Weight: 115 kg

DRUGS (7)
  1. CHANTIX [Suspect]
     Indication: SMOKING CESSATION THERAPY
     Dosage: 0.5 MG, 1X/DAY
  2. CHANTIX [Suspect]
     Dosage: 0.5 MG, 2X/DAY
  3. CHANTIX [Suspect]
     Dosage: 1 MG, 2X/DAY
  4. CHANTIX [Suspect]
     Dosage: UNK
     Dates: start: 200703, end: 200706
  5. CHANTIX [Suspect]
     Dosage: UNK
     Dates: start: 200804
  6. TEGRETOL [Concomitant]
     Indication: EPILEPSY
     Dosage: 400 MG, 2X/DAY
  7. METOPROLOL [Concomitant]
     Indication: CORONARY ARTERY DISEASE
     Dosage: 75 MG, 1X/DAY

REACTIONS (2)
  - Anger [Recovered/Resolved]
  - Stress [Recovered/Resolved]
